FAERS Safety Report 17620408 (Version 1)
Quarter: 2020Q2

REPORT INFORMATION
  Report Type: Spontaneous
  Country: US (occurrence: US)
  Receive Date: 20200403
  Receipt Date: 20200403
  Transmission Date: 20200713
  Serious: No
  Sender: FDA-Public Use
  Company Number: US-DRREDDYS-USA/USA/20/0121310

PATIENT
  Sex: Female

DRUGS (1)
  1. SIROLIMUS. [Suspect]
     Active Substance: SIROLIMUS
     Indication: LYMPHATIC DISORDER
     Route: 048

REACTIONS (3)
  - Menstrual disorder [Unknown]
  - Epigastric discomfort [Unknown]
  - Acne [Unknown]
